FAERS Safety Report 6309242-1 (Version None)
Quarter: 2009Q3

REPORT INFORMATION
  Report Type: 
  Country: None (occurrence: None)
  Receive Date: 20090814
  Receipt Date: 20090807
  Transmission Date: 20100115
  Serious: Yes (Other)
  Sender: FDA-Public Use
  Company Number: JP-PFIZER INC-2009236072

PATIENT
  Age: 27 Month

DRUGS (3)
  1. ATARAX [Suspect]
     Indication: CRYING
     Dosage: 10 MG, 1X/DAY
     Route: 048
     Dates: start: 20090620, end: 20090622
  2. ATARAX [Suspect]
     Indication: INSOMNIA
  3. PERIACTIN [Concomitant]

REACTIONS (2)
  - ABNORMAL BEHAVIOUR [None]
  - VOMITING [None]
